FAERS Safety Report 11889056 (Version 1)
Quarter: 2016Q1

REPORT INFORMATION
  Report Type: Spontaneous
  Country: US (occurrence: None)
  Receive Date: 20160104
  Receipt Date: 20160104
  Transmission Date: 20160526
  Serious: Yes (Hospitalization)
  Sender: FDA-Public Use
  Company Number: None

PATIENT
  Age: 65 Year
  Sex: Male

DRUGS (2)
  1. HEPARIN [Suspect]
     Active Substance: HEPARIN SODIUM
     Indication: SURGERY
     Dosage: 1000 UNITS  PER HOUR  IV
     Route: 042
     Dates: start: 20151123, end: 20151123
  2. HEPARIN [Suspect]
     Active Substance: HEPARIN SODIUM
     Indication: CARDIOVASCULAR DISORDER
     Dosage: 1000 UNITS  PER HOUR  IV
     Route: 042
     Dates: start: 20151123, end: 20151123

REACTIONS (2)
  - Headache [None]
  - Haematoma [None]

NARRATIVE: CASE EVENT DATE: 20151124
